FAERS Safety Report 21779756 (Version 1)
Quarter: 2022Q4

REPORT INFORMATION
  Report Type: Report from Study
  Country: US (occurrence: US)
  Receive Date: 20221226
  Receipt Date: 20221226
  Transmission Date: 20230113
  Serious: No
  Sender: FDA-Public Use
  Company Number: US-ABBVIE-22K-163-4533285-00

PATIENT
  Sex: Female

DRUGS (2)
  1. IMBRUVICA [Suspect]
     Active Substance: IBRUTINIB
     Indication: Chronic lymphocytic leukaemia
     Route: 048
     Dates: start: 201805
  2. IMBRUVICA [Suspect]
     Active Substance: IBRUTINIB
     Indication: Chronic lymphocytic leukaemia
     Route: 048
     Dates: start: 20170826

REACTIONS (10)
  - Asthenia [Unknown]
  - Fibromyalgia [Unknown]
  - Stress [Unknown]
  - Pain [Unknown]
  - Sinus disorder [Unknown]
  - Hypertension [Unknown]
  - Contusion [Unknown]
  - Skin atrophy [Unknown]
  - Increased upper airway secretion [Unknown]
  - Back disorder [Unknown]
